FAERS Safety Report 14153040 (Version 6)
Quarter: 2022Q3

REPORT INFORMATION
  Report Type: Spontaneous
  Country: US (occurrence: US)
  Receive Date: 20171102
  Receipt Date: 20220801
  Transmission Date: 20221027
  Serious: Yes (Life-Threatening, Other)
  Sender: FDA-Public Use
  Company Number: US-PFIZER INC-2017471355

PATIENT
  Age: 51 Year
  Sex: Female

DRUGS (49)
  1. PREVACID [Suspect]
     Active Substance: LANSOPRAZOLE
     Indication: Hyperchlorhydria
     Dosage: 30 MG, 2X/DAY
     Dates: start: 1998, end: 201610
  2. PREVACID [Suspect]
     Active Substance: LANSOPRAZOLE
     Indication: Gastrooesophageal reflux disease
     Dosage: 30 MG, 2X/DAY
     Route: 048
     Dates: start: 201206, end: 2017
  3. PREVACID [Suspect]
     Active Substance: LANSOPRAZOLE
     Indication: Reflux gastritis
  4. PROTONIX [Suspect]
     Active Substance: PANTOPRAZOLE SODIUM
     Indication: Hyperchlorhydria
     Dosage: 40 MG, 2X/DAY
     Dates: start: 20100526, end: 20101004
  5. PROTONIX [Suspect]
     Active Substance: PANTOPRAZOLE SODIUM
     Indication: Gastrooesophageal reflux disease
     Dosage: 40 MG, 2X/DAY
     Dates: start: 20120604
  6. PROTONIX [Suspect]
     Active Substance: PANTOPRAZOLE SODIUM
     Dosage: 40 MG, 2X/DAY
     Route: 048
     Dates: start: 201206, end: 201207
  7. DEXILANT [Suspect]
     Active Substance: DEXLANSOPRAZOLE
     Indication: Hyperchlorhydria
     Dosage: 60 MG, 1X/DAY
     Dates: start: 201302, end: 201303
  8. DEXILANT [Suspect]
     Active Substance: DEXLANSOPRAZOLE
     Indication: Gastrooesophageal reflux disease
  9. NEXIUM [Suspect]
     Active Substance: ESOMEPRAZOLE MAGNESIUM
     Indication: Gastrooesophageal reflux disease
     Dosage: 40 MG, 1X/DAY
     Dates: start: 200603
  10. NEXIUM [Suspect]
     Active Substance: ESOMEPRAZOLE MAGNESIUM
     Dosage: 40 MG, UNK
     Dates: start: 201201, end: 201207
  11. PRILOSEC [Suspect]
     Active Substance: OMEPRAZOLE MAGNESIUM
     Indication: Gastrooesophageal reflux disease
     Dosage: 20 MG, 1X/DAY
     Dates: start: 1996, end: 2003
  12. PRILOSEC OTC [Suspect]
     Active Substance: OMEPRAZOLE MAGNESIUM
     Indication: Gastrooesophageal reflux disease
     Dosage: 20 MG, 1X/DAY
     Dates: start: 2010
  13. OMEPRAZOLE [Suspect]
     Active Substance: OMEPRAZOLE
     Indication: Gastrooesophageal reflux disease
     Dosage: 40 MG, UNK
     Dates: start: 201302, end: 201707
  14. OMEPRAZOLE [Suspect]
     Active Substance: OMEPRAZOLE
     Dosage: 40 MG, 1X/DAY
     Dates: start: 20130211
  15. OMEPRAZOLE [Suspect]
     Active Substance: OMEPRAZOLE
     Dosage: 40 MG, 1X/DAY
     Dates: start: 20161031
  16. OMEPRAZOLE [Suspect]
     Active Substance: OMEPRAZOLE
     Dosage: 40 MG, 1X/DAY
     Dates: start: 20161126, end: 20170702
  17. PANTOPRAZOLE [Suspect]
     Active Substance: PANTOPRAZOLE
     Indication: Gastrooesophageal reflux disease
     Dosage: 40 MG, 1X/DAY
     Dates: start: 20110208, end: 20120830
  18. PANTOPRAZOLE [Suspect]
     Active Substance: PANTOPRAZOLE
     Dosage: 40 MG, 1X/DAY
     Dates: start: 20121023
  19. PANTOPRAZOLE [Suspect]
     Active Substance: PANTOPRAZOLE
     Dosage: 40 MG, 1X/DAY
     Dates: start: 20130821
  20. PANTOPRAZOLE [Suspect]
     Active Substance: PANTOPRAZOLE
     Dosage: 40 MG, 1X/DAY
     Dates: start: 2017
  21. CARAFATE [Concomitant]
     Active Substance: SUCRALFATE
     Indication: Reflux gastritis
     Dosage: UNK
  22. PROPANOL (PROPRANOLOL HYDROCHLORIDE) [Concomitant]
     Active Substance: PROPRANOLOL HYDROCHLORIDE
     Indication: Blood pressure abnormal
     Dosage: UNK
     Dates: start: 2014
  23. PROPANOL (PROPRANOLOL HYDROCHLORIDE) [Concomitant]
     Active Substance: PROPRANOLOL HYDROCHLORIDE
     Indication: Cardiac disorder
  24. ZOFRAN [Concomitant]
     Active Substance: ONDANSETRON HYDROCHLORIDE
     Indication: Nausea
     Dosage: UNK, AS NEEDED
     Dates: start: 2014
  25. LEVAPRO [Concomitant]
     Indication: Depression
     Dosage: UNK
     Dates: start: 2012
  26. REMERON [Concomitant]
     Active Substance: MIRTAZAPINE
     Indication: Insomnia
     Dosage: UNK, AS NEEDED
     Dates: start: 2016
  27. FIORICET [Concomitant]
     Active Substance: ACETAMINOPHEN\BUTALBITAL\CAFFEINE
     Indication: Migraine
     Dosage: UNK
     Dates: start: 2016
  28. PROPRANOLOL [Concomitant]
     Active Substance: PROPRANOLOL HYDROCHLORIDE
     Indication: Blood pressure abnormal
     Dosage: UNK
     Dates: start: 2012
  29. LEVSIN [Concomitant]
     Active Substance: HYOSCYAMINE SULFATE
     Indication: Irritable bowel syndrome
     Dosage: UNK
     Dates: start: 2013
  30. CLONIDINE [Concomitant]
     Active Substance: CLONIDINE
     Indication: Hypertension
     Dosage: UNK, AS NEEDED
     Dates: start: 2014
  31. LEXAPRO [Concomitant]
     Active Substance: ESCITALOPRAM OXALATE
     Indication: Depression
     Dosage: UNK
     Dates: start: 2013
  32. AXID [Concomitant]
     Active Substance: NIZATIDINE
     Dosage: UNK
  33. TAGAMET HB (OTC) [Concomitant]
     Dosage: UNK
  34. TRAMADOL [Concomitant]
     Active Substance: TRAMADOL
     Indication: Pain
     Dosage: UNK
     Dates: start: 201201, end: 201311
  35. SULFAMETHOXAZOLE\TRIMETHOPRIM [Concomitant]
     Active Substance: SULFAMETHOXAZOLE\TRIMETHOPRIM
     Indication: Infection
     Dosage: UNK
     Dates: start: 201204, end: 201308
  36. CIPROFLOXACIN [Concomitant]
     Active Substance: CIPROFLOXACIN
     Indication: Infection
     Dosage: UNK
     Dates: start: 201006, end: 201006
  37. LEVOFLOXACIN [Concomitant]
     Active Substance: LEVOFLOXACIN
     Indication: Infection
     Dosage: UNK
     Dates: start: 201208, end: 201501
  38. LISINOPRIL [Concomitant]
     Active Substance: LISINOPRIL
     Indication: Hypertension
     Dosage: UNK
     Dates: start: 201211, end: 201301
  39. DOXEPIN [Concomitant]
     Active Substance: DOXEPIN
     Indication: Depression
     Dosage: UNK
     Dates: start: 201211, end: 201301
  40. FLUOXETINE [Concomitant]
     Active Substance: FLUOXETINE HYDROCHLORIDE
     Indication: Depression
     Dosage: UNK
     Dates: start: 201303, end: 201305
  41. ZOVIRAX [Concomitant]
     Active Substance: ACYCLOVIR
     Indication: Infection
     Dosage: UNK
     Dates: start: 201310, end: 201311
  42. AVELOX [Concomitant]
     Active Substance: MOXIFLOXACIN HYDROCHLORIDE
     Indication: Infection
     Dosage: UNK
     Dates: start: 201311, end: 201311
  43. ERYTHROMYCIN [Concomitant]
     Active Substance: ERYTHROMYCIN
     Indication: Infection
     Dosage: UNK
     Dates: start: 201611, end: 201611
  44. FAMOTIDINE [Concomitant]
     Active Substance: FAMOTIDINE
     Dosage: UNK
     Dates: start: 2014, end: 2014
  45. RANITIDINE [Concomitant]
     Active Substance: RANITIDINE
     Dosage: UNK
     Dates: start: 201610, end: 201708
  46. PEPCID [Concomitant]
     Active Substance: FAMOTIDINE
     Dosage: UNK, AS NEEDED
     Dates: start: 1995
  47. PEPCID [Concomitant]
     Active Substance: FAMOTIDINE
     Dosage: UNK, AS NEEDED
     Dates: start: 2010
  48. PEPCID [Concomitant]
     Active Substance: FAMOTIDINE
     Dosage: UNK, AS NEEDED
     Dates: start: 2014
  49. TUMS [Concomitant]
     Active Substance: CALCIUM CARBONATE
     Indication: Antacid therapy
     Dosage: UNK, AS NEEDED
     Dates: start: 2022

REACTIONS (2)
  - Chronic kidney disease [Not Recovered/Not Resolved]
  - Gastrooesophageal reflux disease [Not Recovered/Not Resolved]

NARRATIVE: CASE EVENT DATE: 20161028
